FAERS Safety Report 7540132-2 (Version None)
Quarter: 2011Q2

REPORT INFORMATION
  Report Type: 
  Country: None (occurrence: None)
  Receive Date: 20110610
  Receipt Date: 20110606
  Transmission Date: 20111010
  Serious: Yes (Hospitalization, Other)
  Sender: FDA-Public Use
  Company Number: JP-ABBOTT-10P-087-0633406-00

PATIENT
  Sex: Female
  Weight: 60 kg

DRUGS (10)
  1. LOXOPROFEN SODIUM HYDRATE [Concomitant]
     Indication: RHEUMATOID ARTHRITIS
     Route: 048
     Dates: start: 20091215
  2. TACROLIMUS [Concomitant]
     Indication: RHEUMATOID ARTHRITIS
     Dates: start: 20091215
  3. CALCITRIOL [Concomitant]
     Indication: OSTEOPOROSIS
     Route: 048
  4. ALENDRONATE SODIUM [Concomitant]
     Indication: OSTEOPOROSIS
     Dosage: 35MG/WK
  5. FAMOTIDINE [Concomitant]
     Indication: ADVERSE DRUG REACTION
     Dates: start: 20091215
  6. FAMOTIDINE [Concomitant]
     Indication: PROPHYLAXIS
  7. HUMIRA [Suspect]
     Indication: RHEUMATOID ARTHRITIS
     Route: 058
     Dates: start: 20100126, end: 20100223
  8. PREDNISOLONE [Concomitant]
     Indication: RHEUMATOID ARTHRITIS
     Dosage: 8MG DAILY
     Route: 048
     Dates: start: 20091215
  9. OMEPRAZOLE [Concomitant]
     Indication: PROPHYLAXIS
  10. OMEPRAZOLE [Concomitant]
     Indication: ADVERSE DRUG REACTION
     Route: 048
     Dates: start: 20091215

REACTIONS (2)
  - DEAFNESS NEUROSENSORY [None]
  - DEAFNESS BILATERAL [None]
